FAERS Safety Report 25958432 (Version 1)
Quarter: 2025Q4

REPORT INFORMATION
  Report Type: Report from Study
  Country: PR (occurrence: PR)
  Receive Date: 20251024
  Receipt Date: 20251024
  Transmission Date: 20260117
  Serious: Yes (Other)
  Sender: EISAI
  Company Number: PR-Eisai-EC-2025-198666

PATIENT
  Age: 66 Year
  Sex: Male
  Weight: 79 kg

DRUGS (8)
  1. LENVIMA [Suspect]
     Active Substance: LENVATINIB
     Indication: Renal cancer
     Route: 048
     Dates: start: 20220926, end: 20250902
  2. LENVIMA [Suspect]
     Active Substance: LENVATINIB
     Route: 048
     Dates: start: 20250930
  3. LENVIMA [Suspect]
     Active Substance: LENVATINIB
     Route: 048
     Dates: start: 20250916, end: 202509
  4. CASODEX [Suspect]
     Active Substance: BICALUTAMIDE
     Indication: Prostate cancer
     Dosage: DOSE AND FREQUENCY UNKNOWN
  5. CASODEX [Suspect]
     Active Substance: BICALUTAMIDE
     Dosage: DOSE AND FREQUENCY UNKNOWN
  6. EVEROLIMUS [Concomitant]
     Active Substance: EVEROLIMUS
     Dosage: DOSE AND FREQUENCY UNKNOWN
  7. NORVASC [Concomitant]
     Active Substance: AMLODIPINE BESYLATE
     Dosage: DOSE AND FREQUENCY UNKNOWN
  8. LYRICA [Concomitant]
     Active Substance: PREGABALIN
     Dosage: DOSE AND FREQUENCY UNKNOWN

REACTIONS (4)
  - Prostate cancer [Not Recovered/Not Resolved]
  - Sudden visual loss [Recovered/Resolved]
  - Headache [Recovered/Resolved]
  - Tooth disorder [Recovered/Resolved]

NARRATIVE: CASE EVENT DATE: 20250901
